FAERS Safety Report 13534547 (Version 1)
Quarter: 2017Q2

REPORT INFORMATION
  Report Type: Spontaneous
  Country: CA (occurrence: CA)
  Receive Date: 20170511
  Receipt Date: 20170511
  Transmission Date: 20170830
  Serious: Yes (Other)
  Sender: FDA-Public Use
  Company Number: CA-ROCHE-1931180

PATIENT
  Age: 52 Year
  Sex: Female
  Weight: 50.8 kg

DRUGS (6)
  1. IMMUNOGLOBULIN G HUMAN [Concomitant]
     Active Substance: HUMAN IMMUNOGLOBULIN G
     Route: 065
     Dates: start: 20090901
  2. PREDNISONE. [Suspect]
     Active Substance: PREDNISONE
     Indication: PRODUCT USED FOR UNKNOWN INDICATION
     Route: 065
  3. VALACYCLOVIR [Concomitant]
     Active Substance: VALACYCLOVIR HYDROCHLORIDE
     Route: 065
     Dates: start: 20090901
  4. PROLIA [Concomitant]
     Active Substance: DENOSUMAB
  5. RITUXAN [Suspect]
     Active Substance: RITUXIMAB
     Indication: CHRONIC GRAFT VERSUS HOST DISEASE
     Route: 065
  6. SULFATRIM [Concomitant]
     Active Substance: SULFAMETHOXAZOLE\TRIMETHOPRIM
     Route: 065
     Dates: start: 20090901

REACTIONS (11)
  - Pain in extremity [Not Recovered/Not Resolved]
  - Serum ferritin increased [Recovering/Resolving]
  - Weight decreased [Unknown]
  - Skin atrophy [Not Recovered/Not Resolved]
  - Clostridium difficile infection [Recovered/Resolved]
  - Mobility decreased [Not Recovered/Not Resolved]
  - Poor venous access [Not Recovered/Not Resolved]
  - Diabetes mellitus [Not Recovered/Not Resolved]
  - Laceration [Not Recovered/Not Resolved]
  - Rash [Not Recovered/Not Resolved]
  - Immunodeficiency [Unknown]

NARRATIVE: CASE EVENT DATE: 20100101
